FAERS Safety Report 8777571 (Version 3)
Quarter: 2012Q4

REPORT INFORMATION
  Report Type: 
  Country: JP (occurrence: JP)
  Receive Date: 20120911
  Receipt Date: 20121224
  Transmission Date: 20130627
  Serious: Yes (Life-Threatening, Other)
  Sender: FDA-Public Use
  Company Number: PHHY2012JP076105

PATIENT
  Age: 33 Year
  Sex: Female

DRUGS (3)
  1. FTY 720 [Suspect]
     Indication: MULTIPLE SCLEROSIS RELAPSE
     Dosage: 0.5 mg, QD
     Route: 048
     Dates: start: 20120807, end: 20120807
  2. ALOSENN [Concomitant]
     Dosage: UNK UKN, UNK
  3. BOUFUUTSUUSHOUSAN [Concomitant]
     Dosage: 7.5 g, UNK
     Route: 048
     Dates: start: 20120807

REACTIONS (9)
  - Atrioventricular block second degree [Recovered/Resolved]
  - Bradyarrhythmia [Unknown]
  - Electrocardiogram QT prolonged [Unknown]
  - Electrocardiogram RR interval prolonged [Unknown]
  - Dizziness [Unknown]
  - Blood pressure decreased [Unknown]
  - Pallor [Unknown]
  - Hypotension [Unknown]
  - Atrioventricular block first degree [Recovered/Resolved]
